FAERS Safety Report 8205664-2 (Version None)
Quarter: 2012Q1

REPORT INFORMATION
  Report Type: 
  Country: None (occurrence: None)
  Receive Date: 20120227
  Receipt Date: 20111128
  Transmission Date: 20120608
  Serious: No
  Sender: FDA-Public Use
  Company Number: 341247

PATIENT
  Sex: Male

DRUGS (4)
  1. VICTOZA [Suspect]
  2. VICTOZA [Suspect]
     Indication: TYPE 2 DIABETES MELLITUS
     Dosage: 1.2 MG, QD, SUBCUTANEOUS ; SUBCUTANEOUS
     Route: 058
     Dates: start: 20111114
  3. AVANDIA [Concomitant]
  4. GLYBURIDE [Concomitant]

REACTIONS (5)
  - WEIGHT DECREASED [None]
  - DECREASED APPETITE [None]
  - ERUCTATION [None]
  - DIARRHOEA [None]
  - BLOOD GLUCOSE INCREASED [None]
